FAERS Safety Report 7527303-6 (Version None)
Quarter: 2011Q2

REPORT INFORMATION
  Report Type: 
  Country: None (occurrence: None)
  Receive Date: 20110607
  Receipt Date: 20110105
  Transmission Date: 20111010
  Serious: Yes (Hospitalization)
  Sender: FDA-Public Use
  Company Number: US-BAYER-201014006NA

PATIENT
  Age: 35 Year
  Sex: Female
  Weight: 111.11 kg

DRUGS (5)
  1. DICYCLOMINE [Concomitant]
  2. YASMIN [Suspect]
     Indication: ACNE
     Route: 048
     Dates: start: 20020701
  3. YASMIN [Suspect]
     Indication: PREMENSTRUAL SYNDROME
  4. VICODIN [Concomitant]
  5. MAALOX [Concomitant]

REACTIONS (3)
  - CHOLELITHIASIS [None]
  - CHOLECYSTECTOMY [None]
  - CHOLECYSTITIS CHRONIC [None]
